FAERS Safety Report 9806509 (Version 2)
Quarter: 2014Q1

REPORT INFORMATION
  Report Type: Spontaneous
  Country: GB (occurrence: GB)
  Receive Date: 20140109
  Receipt Date: 20140130
  Transmission Date: 20141002
  Serious: Yes (Hospitalization)
  Sender: FDA-Public Use
  Company Number: GB-BAYER-2014-000951

PATIENT
  Sex: Female

DRUGS (2)
  1. CANESTEN ORAL + CREAM DUO [Suspect]
  2. CANESTEN ORAL + CREAM DUO [Suspect]
     Route: 048

REACTIONS (1)
  - Sciatica [Recovered/Resolved]
